FAERS Safety Report 21385607 (Version 2)
Quarter: 2022Q4

REPORT INFORMATION
  Report Type: Report from Study
  Country: US (occurrence: None)
  Receive Date: 20220928
  Receipt Date: 20221018
  Transmission Date: 20230113
  Serious: Yes (Other)
  Sender: FDA-Public Use
  Company Number: US-ROCHE-3185759

PATIENT
  Age: 78 Year
  Sex: Female
  Weight: 43.3 kg

DRUGS (3)
  1. OBINUTUZUMAB [Suspect]
     Active Substance: OBINUTUZUMAB
     Indication: Chronic lymphocytic leukaemia
     Dosage: ON 26/JUL/2022, LAST DOSE OF OBINUTUZUMAB WAS ADMINISTERED. TOTAL DOSE 1000 MG. DOSE OF 100 MG IV ON
     Route: 042
     Dates: start: 20220726, end: 20220726
  2. VENETOCLAX [Suspect]
     Active Substance: VENETOCLAX
     Indication: Chronic lymphocytic leukaemia
     Dosage: ON 25/JUL/2022, LAST DOSE OF VENETOCLAX WAS ADMINISTERED. DOSE OF 20 MG PER ORAL, ONCE A DAY, DAYS 1
     Route: 048
  3. IBRUTINIB [Suspect]
     Active Substance: IBRUTINIB
     Indication: Chronic lymphocytic leukaemia
     Dosage: ON 24/AUG/2022, LAST DOSE OF IBRUTINIB WAS ADMINISTERED, TOTAL DOSE WAS 12180 MG. DOSE OF 420 MG PER
     Route: 048
     Dates: start: 20220726, end: 20220824

REACTIONS (2)
  - Nausea [Recovered/Resolved]
  - Weight decreased [Recovering/Resolving]

NARRATIVE: CASE EVENT DATE: 20220726
